FAERS Safety Report 6280433-1 (Version None)
Quarter: 2009Q3

REPORT INFORMATION
  Report Type: 
  Country: None (occurrence: None)
  Receive Date: 20090724
  Receipt Date: 20090720
  Transmission Date: 20100115
  Serious: Yes (Hospitalization)
  Sender: FDA-Public Use
  Company Number: FR-WYE-G04083709

PATIENT
  Sex: Male
  Weight: 71 kg

DRUGS (8)
  1. GEMTUZUMAB OZOGAMICIN [Suspect]
     Indication: ACUTE MONOCYTIC LEUKAEMIA
     Dosage: 5 MG 1 TIME PER DAY AT DAY 1, 4 AND 7
     Route: 042
     Dates: start: 20090226, end: 20090304
  2. ARACYTINE [Suspect]
     Indication: ACUTE MONOCYTIC LEUKAEMIA
     Route: 042
     Dates: start: 20090226, end: 20090304
  3. ARACYTINE [Suspect]
     Dosage: 40 MG
     Route: 037
     Dates: start: 20090311, end: 20090311
  4. TARGOCID [Concomitant]
     Indication: PYREXIA
     Dosage: UNKNOWN
     Dates: start: 20090301, end: 20090403
  5. DEPO-MEDROL [Suspect]
     Dosage: 40 MG
     Route: 037
     Dates: start: 20090311, end: 20090311
  6. FORTUM [Concomitant]
     Indication: PYREXIA
     Dosage: UNKNOWN
     Dates: start: 20090301, end: 20090403
  7. CERUBIDINE [Suspect]
     Indication: ACUTE MONOCYTIC LEUKAEMIA
     Route: 042
     Dates: start: 20090226, end: 20090228
  8. METHOTREXATE [Suspect]
     Dosage: 15 MG
     Route: 037
     Dates: start: 20090311, end: 20090311

REACTIONS (2)
  - PARTIAL SEIZURES [None]
  - SUBDURAL HAEMATOMA [None]
